FAERS Safety Report 25627586 (Version 1)
Quarter: 2025Q3

REPORT INFORMATION
  Report Type: Spontaneous
  Country: BR (occurrence: BR)
  Receive Date: 20250731
  Receipt Date: 20250731
  Transmission Date: 20251020
  Serious: Yes (Other)
  Sender: ALEXION PHARMACEUTICALS
  Company Number: BR-ASTRAZENECA-202507GLO026755BR

PATIENT
  Age: 2 Month
  Sex: Female

DRUGS (2)
  1. OMEPRAZOLE [Suspect]
     Active Substance: OMEPRAZOLE
     Indication: Gastrooesophageal reflux disease
  2. VITAMIN D [Concomitant]
     Active Substance: VITAMIN D NOS

REACTIONS (3)
  - Haematochezia [Not Recovered/Not Resolved]
  - Intentional product use issue [Unknown]
  - Suspected product contamination [Not Recovered/Not Resolved]

NARRATIVE: CASE EVENT DATE: 20250601
